FAERS Safety Report 6038490-3 (Version None)
Quarter: 2009Q1

REPORT INFORMATION
  Report Type: 
  Country: None (occurrence: None)
  Receive Date: 20090115
  Receipt Date: 20080327
  Transmission Date: 20090719
  Serious: Yes (Other)
  Sender: FDA-Public Use
  Company Number: US-KINGPHARMUSA00001-K200800370

PATIENT
  Sex: Female

DRUGS (1)
  1. EPIPEN [Suspect]
     Indication: HYPERSENSITIVITY
     Dosage: UNK, SINGLE
     Route: 030
     Dates: start: 20070101, end: 20070101

REACTIONS (12)
  - ACCIDENTAL EXPOSURE [None]
  - EUPHORIC MOOD [None]
  - FEELING ABNORMAL [None]
  - INJECTION SITE ANAESTHESIA [None]
  - INJECTION SITE COLDNESS [None]
  - INJECTION SITE PAIN [None]
  - INJECTION SITE PALLOR [None]
  - MENTAL DISORDER [None]
  - PALPITATIONS [None]
  - PSYCHOMOTOR HYPERACTIVITY [None]
  - THINKING ABNORMAL [None]
  - TREMOR [None]
